FAERS Safety Report 17662318 (Version 1)
Quarter: 2020Q2

REPORT INFORMATION
  Report Type: Spontaneous
  Country: JP (occurrence: JP)
  Receive Date: 20200413
  Receipt Date: 20200413
  Transmission Date: 20200713
  Serious: Yes (Other)
  Sender: FDA-Public Use
  Company Number: JP-OTSUKA-2019_042333AA

PATIENT
  Age: 7 Decade
  Sex: Female
  Weight: 56.7 kg

DRUGS (3)
  1. SPIRONOLACTONE. [Concomitant]
     Active Substance: SPIRONOLACTONE
     Indication: FLUID BALANCE ASSESSMENT
     Dosage: 25 MG, QD
     Route: 048
     Dates: start: 20191001
  2. SAMSCA [Suspect]
     Active Substance: TOLVAPTAN
     Indication: HEPATIC CIRRHOSIS
  3. SAMSCA [Suspect]
     Active Substance: TOLVAPTAN
     Indication: FLUID RETENTION
     Dosage: 7.5 MG, QD
     Route: 048
     Dates: start: 20191001, end: 20191005

REACTIONS (3)
  - Hypernatraemia [Recovered/Resolved]
  - Delirium [Unknown]
  - Rapid correction of hyponatraemia [Unknown]
